FAERS Safety Report 25965678 (Version 1)
Quarter: 2025Q4

REPORT INFORMATION
  Report Type: Spontaneous
  Country: US (occurrence: US)
  Receive Date: 20251027
  Receipt Date: 20251027
  Transmission Date: 20260117
  Serious: No
  Sender: BIOMARIN
  Company Number: US-BIOMARINAP-US-2025-169630

PATIENT
  Age: 8 Year
  Sex: Male

DRUGS (1)
  1. BRINEURA [Suspect]
     Active Substance: CERLIPONASE ALFA
     Indication: Product used for unknown indication
     Dosage: UNK

REACTIONS (3)
  - Catheter site swelling [Recovered/Resolved]
  - Device leakage [Unknown]
  - Device dislocation [Unknown]

NARRATIVE: CASE EVENT DATE: 20251022
